FAERS Safety Report 23887674 (Version 1)
Quarter: 2024Q2

REPORT INFORMATION
  Report Type: Spontaneous
  Country: CA (occurrence: None)
  Receive Date: 20240523
  Receipt Date: 20240523
  Transmission Date: 20240716
  Serious: Yes (Hospitalization)
  Sender: FDA-Public Use
  Company Number: 2024A115762

PATIENT
  Age: 67 Year
  Sex: Male
  Weight: 129 kg

DRUGS (11)
  1. DAPAGLIFLOZIN [Suspect]
     Active Substance: DAPAGLIFLOZIN
     Indication: Diabetes mellitus
  2. DAPAGLIFLOZIN [Suspect]
     Active Substance: DAPAGLIFLOZIN
     Indication: Cardiac failure
  3. APIXABAN [Concomitant]
     Active Substance: APIXABAN
  4. CARVEDILOL [Concomitant]
     Active Substance: CARVEDILOL
  5. CHOLECALCIFEROL [Concomitant]
     Active Substance: CHOLECALCIFEROL
  6. INSULIN ASPART [Concomitant]
     Active Substance: INSULIN ASPART
  7. INSULIN DEGLUDEC INJECTION FLEXTOUCH [Concomitant]
  8. METFORMIN [Concomitant]
     Active Substance: METFORMIN HYDROCHLORIDE
  9. OZEMPIC [Concomitant]
     Active Substance: SEMAGLUTIDE
     Route: 058
  10. ROSUVASTATIN [Concomitant]
     Active Substance: ROSUVASTATIN
  11. VALSARTAN/SACUBITRIL [Concomitant]

REACTIONS (2)
  - Diabetic foot [Unknown]
  - Sepsis [Unknown]
